FAERS Safety Report 4679802-2 (Version None)
Quarter: 2005Q2

REPORT INFORMATION
  Report Type: 
  Country: None (occurrence: None)
  Receive Date: 20050602
  Receipt Date: 20050310
  Transmission Date: 20051028
  Serious: Yes (Death, Hospitalization)
  Sender: FDA-Public Use
  Company Number: US-MERCK-0503USA01925

PATIENT
  Age: 66 Year
  Sex: Male
  Weight: 86 kg

DRUGS (12)
  1. VIOXX [Suspect]
     Indication: ARTHRITIS
     Route: 048
     Dates: start: 20000428, end: 20021125
  2. ELAVIL [Concomitant]
     Route: 048
  3. PRILOSEC [Concomitant]
     Route: 048
  4. POTASSIUM CHLORIDE [Concomitant]
     Route: 048
  5. COUMADIN [Concomitant]
     Route: 065
  6. LANOXIN [Concomitant]
     Route: 048
  7. LASIX [Concomitant]
     Route: 048
  8. COREG [Concomitant]
     Route: 048
  9. TEGRETOL [Concomitant]
     Route: 048
  10. BACLOFEN [Concomitant]
     Route: 048
  11. ZOLOFT [Concomitant]
     Route: 048
  12. AVAPRO [Concomitant]
     Route: 048

REACTIONS (29)
  - ANXIETY [None]
  - ATRIAL FIBRILLATION [None]
  - BLOOD PRESSURE IMMEASURABLE [None]
  - BLOOD SODIUM DECREASED [None]
  - BRAIN DEATH [None]
  - BRAIN HYPOXIA [None]
  - CARDIAC MURMUR [None]
  - CARDIO-RESPIRATORY ARREST [None]
  - CEREBRAL ATROPHY [None]
  - CEREBROVASCULAR ACCIDENT [None]
  - CONVULSION [None]
  - CYANOSIS [None]
  - DILATATION ATRIAL [None]
  - ELECTROENCEPHALOGRAM ABNORMAL [None]
  - ENCEPHALOPATHY [None]
  - FALL [None]
  - HEART RATE IRREGULAR [None]
  - HYPERGLYCAEMIA [None]
  - LOSS OF CONSCIOUSNESS [None]
  - MITRAL VALVE INCOMPETENCE [None]
  - MYOCARDIAL INFARCTION [None]
  - PNEUMONIA ASPIRATION [None]
  - PULMONARY VALVE INCOMPETENCE [None]
  - PULSE ABSENT [None]
  - PUPIL FIXED [None]
  - PYREXIA [None]
  - TRICUSPID VALVE INCOMPETENCE [None]
  - URINARY INCONTINENCE [None]
  - VENTRICULAR HYPERTROPHY [None]
